FAERS Safety Report 4404602-8 (Version None)
Quarter: 2004Q3

REPORT INFORMATION
  Report Type: 
  Country: None (occurrence: None)
  Receive Date: 20040722
  Receipt Date: 20040419
  Transmission Date: 20050211
  Serious: Yes (Hospitalization, Other)
  Sender: FDA-Public Use
  Company Number: GB-BRISTOL-MYERS SQUIBB COMPANY-12585790

PATIENT
  Age: 40 Year
  Sex: Female

DRUGS (4)
  1. HOLOXAN [Suspect]
     Indication: BURKITT'S LYMPHOMA
     Dosage: THERAPY DATES: 05 TO 09-APR-2004 LOT #: 1 G 3C113; 2 G 2E006; 3A100, 3C104
     Route: 042
     Dates: start: 20040409, end: 20040409
  2. ONDANSETRON [Concomitant]
     Route: 042
     Dates: start: 20040405, end: 20040411
  3. ALLOPURINOL [Concomitant]
     Route: 048
     Dates: start: 20040405, end: 20040413
  4. ITRACONAZOLE [Concomitant]
     Route: 048
     Dates: start: 20040406, end: 20040413

REACTIONS (3)
  - BLOOD ALKALINE PHOSPHATASE INCREASED [None]
  - BLOOD POTASSIUM DECREASED [None]
  - ENCEPHALOPATHY [None]
